FAERS Safety Report 23383039 (Version 1)
Quarter: 2024Q1

REPORT INFORMATION
  Report Type: Spontaneous
  Country: GB (occurrence: GB)
  Receive Date: 20240109
  Receipt Date: 20240109
  Transmission Date: 20240410
  Serious: Yes (Other)
  Sender: FDA-Public Use
  Company Number: None

PATIENT
  Age: 79 Year
  Sex: Male
  Weight: 86 kg

DRUGS (8)
  1. FINASTERIDE [Suspect]
     Active Substance: FINASTERIDE
     Indication: Product used for unknown indication
     Dosage: QD, ONE TO BE TAKEN EACH DAY
     Route: 065
     Dates: start: 20190712, end: 20231215
  2. AMLODIPINE [Concomitant]
     Active Substance: AMLODIPINE BESYLATE
     Dosage: 28 MILLIGRAM, 5 OD
     Route: 065
     Dates: start: 20060126
  3. ATORVASTATIN [Concomitant]
     Active Substance: ATORVASTATIN
     Dosage: 28 MILLIGRAM, 20
     Route: 065
     Dates: start: 20150513
  4. NAPROXEN [Concomitant]
     Active Substance: NAPROXEN
     Dosage: 56 MILLIGRAM, 250
     Route: 065
     Dates: start: 20140214
  5. SILDENAFIL [Concomitant]
     Active Substance: SILDENAFIL
     Dosage: 4 MILLIGRAM, 100
     Route: 065
     Dates: start: 20041029
  6. TAMSULOSIN [Concomitant]
     Active Substance: TAMSULOSIN
     Indication: Adverse drug reaction
     Dosage: QD, TAKE ONE DAILY
     Route: 065
     Dates: start: 20231215
  7. OMEPRAZOLE [Concomitant]
     Active Substance: OMEPRAZOLE
     Dosage: 20
     Route: 065
     Dates: start: 20110107
  8. RAMIPRIL [Concomitant]
     Active Substance: RAMIPRIL
     Dosage: 28 MILLIGRAM, 10
     Route: 065
     Dates: start: 20070328

REACTIONS (1)
  - Thrombocytopenia [Recovered/Resolved]

NARRATIVE: CASE EVENT DATE: 20210719
